FAERS Safety Report 9203153 (Version 3)
Quarter: 2013Q3

REPORT INFORMATION
  Report Type: Spontaneous
  Country: US (occurrence: None)
  Receive Date: 20130329
  Receipt Date: 20130705
  Transmission Date: 20140515
  Serious: Yes (Death)
  Sender: FDA-Public Use
  Company Number: 2013SGN00163

PATIENT
  Age: 66 Year
  Sex: Female
  Weight: 72.6 kg

DRUGS (12)
  1. BRENTUXIMAB VEDOTIN (BRENTUXIMAB VEDOTIN) INJECTION [Suspect]
     Indication: OVARIAN EPITHELIAL CANCER
     Dosage: 1.8 MG/KG, Q21D, INTRAVENOUS
     Dates: start: 20120801, end: 20130305
  2. AMBIEN (ZOLPIDEM TARTRATE) [Concomitant]
  3. AMLODIPINE (AMLODIPINE MESILATE) [Concomitant]
  4. COUMADIN (WARFARIN SODIUM) [Concomitant]
  5. GABAPENTIN (GABAPENTIN) [Concomitant]
  6. MULTIVITAMIN (VITAMINS NOS) [Concomitant]
  7. OMEGA-3 (OMEGA-3 TRIGLYCERIDES) [Concomitant]
  8. TYLENOL ARTHRITIS (PARACETAMOL) [Concomitant]
  9. VIACTIV (CALCIUM) [Concomitant]
  10. VITAMIN B12 (CYANOCOBALAMIN) [Concomitant]
  11. VITAMIN B6 (VITAMIN B6) [Concomitant]
  12. NORMAL SALINE (NORMAL SALINE) [Concomitant]

REACTIONS (12)
  - Dyspnoea [None]
  - Palpitations [None]
  - Chest discomfort [None]
  - Fatigue [None]
  - Asthenia [None]
  - Metabolic acidosis [None]
  - Respiratory alkalosis [None]
  - Sepsis [None]
  - Hypotension [None]
  - Cardiac arrest [None]
  - Septic shock [None]
  - Culture urine positive [None]
